FAERS Safety Report 7772646-4 (Version None)
Quarter: 2011Q3

REPORT INFORMATION
  Report Type: 
  Country: None (occurrence: None)
  Receive Date: 20110922
  Receipt Date: 20101230
  Transmission Date: 20111222
  Serious: No
  Sender: FDA-Public Use
  Company Number: US-ASTRAZENECA-2010SE61456

PATIENT
  Age: 42 Year
  Sex: Female

DRUGS (5)
  1. CLONAZEPAM [Concomitant]
  2. TRILEPTAL [Concomitant]
  3. LITHIUM [Concomitant]
  4. SEROQUEL XR [Suspect]
     Indication: SLEEP DISORDER
     Route: 048
     Dates: start: 20090101, end: 20101201
  5. SEROQUEL XR [Suspect]
     Indication: BIPOLAR I DISORDER
     Route: 048
     Dates: start: 20090101, end: 20101201

REACTIONS (6)
  - PALPITATIONS [None]
  - IMPAIRED WORK ABILITY [None]
  - DRUG DOSE OMISSION [None]
  - ABNORMAL BEHAVIOUR [None]
  - FEELING JITTERY [None]
  - NERVOUSNESS [None]
